FAERS Safety Report 9416933 (Version 1)
Quarter: 2013Q3

REPORT INFORMATION
  Report Type: Spontaneous
  Country: DE (occurrence: DE)
  Receive Date: 20130724
  Receipt Date: 20130724
  Transmission Date: 20140515
  Serious: No
  Sender: FDA-Public Use
  Company Number: DE-SANOFI-AVENTIS-2013SA072825

PATIENT
  Sex: Male

DRUGS (1)
  1. LEFLUNOMIDE(WINTHROP) [Suspect]
     Indication: PRODUCT USED FOR UNKNOWN INDICATION
     Route: 048
     Dates: start: 20130607

REACTIONS (1)
  - Exposure via father [Unknown]
